FAERS Safety Report 14690637 (Version 1)
Quarter: 2018Q1

REPORT INFORMATION
  Report Type: Spontaneous
  Country: CN (occurrence: CN)
  Receive Date: 20180328
  Receipt Date: 20180328
  Transmission Date: 20180509
  Serious: Yes (Hospitalization)
  Sender: FDA-Public Use
  Company Number: CN-NORTHSTAR HEALTHCARE HOLDINGS-CN-2018NSR000085

PATIENT
  Age: 26 Year
  Sex: Female

DRUGS (3)
  1. PROPRANOLOL HYDROCHLORIDE. [Suspect]
     Active Substance: PROPRANOLOL HYDROCHLORIDE
     Indication: LONG QT SYNDROME CONGENITAL
     Dosage: 30 MG, QD
     Route: 048
  2. POTASSIUM ASPARTATE [Concomitant]
     Active Substance: POTASSIUM ASPARTATE
     Indication: LONG QT SYNDROME CONGENITAL
     Dosage: 474 MG, QD
  3. MAGNESIUM ASPARTATE [Concomitant]
     Active Substance: MAGNESIUM ASPARTATE
     Indication: LONG QT SYNDROME CONGENITAL
     Dosage: 420 MG, QD

REACTIONS (3)
  - Torsade de pointes [Recovered/Resolved]
  - Electrocardiogram QT prolonged [Recovering/Resolving]
  - Heart rate decreased [Unknown]
